FAERS Safety Report 18833241 (Version 1)
Quarter: 2021Q1

REPORT INFORMATION
  Report Type: Spontaneous
  Country: US (occurrence: US)
  Receive Date: 20210202
  Receipt Date: 20210202
  Transmission Date: 20210419
  Serious: Yes (Hospitalization)
  Sender: FDA-Public Use
  Company Number: None

PATIENT
  Age: 40 Year
  Sex: Female
  Weight: 93.44 kg

DRUGS (2)
  1. NUEDEXTA [Suspect]
     Active Substance: DEXTROMETHORPHAN HYDROBROMIDE\QUINIDINE SULFATE
  2. NUDEXTA [Concomitant]
     Dates: start: 20170720, end: 20171106

REACTIONS (3)
  - Vertigo [None]
  - Affect lability [None]
  - Dizziness [None]

NARRATIVE: CASE EVENT DATE: 20150712
